FAERS Safety Report 23837268 (Version 1)
Quarter: 2024Q2

REPORT INFORMATION
  Report Type: Spontaneous
  Country: PT (occurrence: PT)
  Receive Date: 20240509
  Receipt Date: 20240509
  Transmission Date: 20240716
  Serious: Yes (Other)
  Sender: FDA-Public Use
  Company Number: PT-Zentiva-2023-ZT-025059

PATIENT
  Age: 84 Year
  Sex: Female

DRUGS (6)
  1. SERTRALINE [Suspect]
     Active Substance: SERTRALINE HYDROCHLORIDE
     Indication: Major depression
     Dosage: 50 MILLIGRAM, QD
     Route: 065
  2. PRAVASTATIN [Concomitant]
     Active Substance: PRAVASTATIN
     Indication: Dyslipidaemia
     Dosage: 40 MILLIGRAM, QD
     Route: 065
  3. QUETIAPINE [Concomitant]
     Active Substance: QUETIAPINE
     Indication: Major depression
     Dosage: 25 MILLIGRAM, QD (AT NIGHT)
     Route: 065
  4. PERINDOPRIL [Concomitant]
     Active Substance: PERINDOPRIL
     Indication: Hypertension
     Dosage: 4 MILLIGRAM, QD
     Route: 065
  5. LORAZEPAM [Concomitant]
     Active Substance: LORAZEPAM
     Indication: Insomnia
     Dosage: 2.5 MILLIGRAM, QD
     Route: 065
  6. OLANZAPINE [Concomitant]
     Active Substance: OLANZAPINE
     Indication: Major depression
     Dosage: 5 MILLIGRAM, QD (NIGHT)
     Route: 065

REACTIONS (5)
  - Hallucination, auditory [Recovering/Resolving]
  - Insomnia [Unknown]
  - Treatment noncompliance [Unknown]
  - Drug ineffective for unapproved indication [Unknown]
  - Off label use [Unknown]
